FAERS Safety Report 4608733-9 (Version None)
Quarter: 2005Q1

REPORT INFORMATION
  Report Type: 
  Country: None (occurrence: None)
  Receive Date: 20050315
  Receipt Date: 20050215
  Transmission Date: 20050727
  Serious: Yes (Other)
  Sender: FDA-Public Use
  Company Number: PHNU2005DE00955

PATIENT
  Age: 80 Year
  Sex: Female
  Weight: 48 kg

DRUGS (6)
  1. RISPERDAL [Suspect]
     Dosage: 1 MG, QD
     Route: 048
     Dates: start: 20050211, end: 20050214
  2. RISPERDAL [Suspect]
     Route: 048
  3. LIORESAL [Suspect]
     Indication: MUSCLE SPASTICITY
     Dosage: 10 MG, BID
     Route: 048
     Dates: start: 20050211
  4. DURAGESIC-100 [Concomitant]
     Indication: PAIN
     Dosage: UNK, UNK
     Route: 058
     Dates: start: 20050207
  5. ZOLPIDEM [Concomitant]
     Indication: RESTLESSNESS
     Route: 048
     Dates: start: 20040601
  6. RAMIPRIL [Concomitant]
     Indication: HYPERTENSION
     Route: 048
     Dates: start: 20040601

REACTIONS (2)
  - COMA [None]
  - DEPRESSED LEVEL OF CONSCIOUSNESS [None]
